FAERS Safety Report 4647400-2 (Version None)
Quarter: 2005Q2

REPORT INFORMATION
  Report Type: 
  Country: None (occurrence: None)
  Receive Date: 20050426
  Receipt Date: 20050410
  Transmission Date: 20051028
  Serious: Yes (Hospitalization)
  Sender: FDA-Public Use
  Company Number: 2005EU000706

PATIENT
  Age: 74 Year
  Sex: Male

DRUGS (6)
  1. PROTOPIC [Suspect]
     Indication: PSORIASIS
     Dosage: TOPICAL
     Route: 061
     Dates: start: 20030709, end: 20040415
  2. ATENOLOL [Concomitant]
  3. AMIODARONE HCL [Concomitant]
  4. DILTIAZEM HCL [Concomitant]
  5. SOTALOL HCL [Concomitant]
  6. WARFARIN SODIUM [Concomitant]

REACTIONS (1)
  - MYCOSIS FUNGOIDES [None]
